FAERS Safety Report 6464506-6 (Version None)
Quarter: 2009Q4

REPORT INFORMATION
  Report Type: 
  Country: None (occurrence: None)
  Receive Date: 20091201
  Receipt Date: 20091123
  Transmission Date: 20100525
  Serious: Yes (Hospitalization)
  Sender: FDA-Public Use
  Company Number: GB-PFIZER INC-2009301389

PATIENT
  Sex: Female

DRUGS (2)
  1. MISOPROSTOL [Suspect]
  2. MIFEPRISTONE [Suspect]
     Indication: ABORTION INDUCED
     Route: 048

REACTIONS (3)
  - DRUG INEFFECTIVE [None]
  - HAEMORRHAGE [None]
  - VASCULITIS CEREBRAL [None]
